FAERS Safety Report 6550685-9 (Version None)
Quarter: 2010Q1

REPORT INFORMATION
  Report Type: 
  Country: None (occurrence: None)
  Receive Date: 20100125
  Receipt Date: 20091110
  Transmission Date: 20100710
  Serious: No
  Sender: FDA-Public Use
  Company Number: US-TYCO HEALTHCARE/MALLINCKRODT-T200902071

PATIENT
  Sex: Male

DRUGS (1)
  1. OPTIRAY 350 [Suspect]
     Dosage: 125 ML (CC), UNK
     Route: 042
     Dates: start: 20091110, end: 20091110

REACTIONS (3)
  - ORAL PRURITUS [None]
  - RASH [None]
  - SKIN TIGHTNESS [None]
